FAERS Safety Report 7828280-0 (Version None)
Quarter: 2011Q4

REPORT INFORMATION
  Report Type: 
  Country: None (occurrence: None)
  Receive Date: 20111020
  Receipt Date: 20111014
  Transmission Date: 20120403
  Serious: No
  Sender: FDA-Public Use
  Company Number: US-PFIZER INC-2011247024

PATIENT
  Sex: Female
  Weight: 81.6 kg

DRUGS (2)
  1. DILANTIN [Suspect]
     Indication: CONVULSION
     Dosage: 100 MG
     Route: 048
  2. DILANTIN [Suspect]
     Dosage: 600 MG, 2X/DAY
     Route: 048

REACTIONS (1)
  - ANTICONVULSANT DRUG LEVEL DECREASED [None]
